FAERS Safety Report 6022623-9 (Version None)
Quarter: 2008Q4

REPORT INFORMATION
  Report Type: 
  Country: None (occurrence: None)
  Receive Date: 20081221
  Receipt Date: 20081221
  Transmission Date: 20090506
  Serious: Yes (Other)
  Sender: FDA-Public Use
  Company Number: None

PATIENT
  Age: 47 Year
  Sex: Male
  Weight: 70.3075 kg

DRUGS (1)
  1. ALPRAZOLAM [Suspect]
     Indication: GENERALISED ANXIETY DISORDER
     Dosage: 0.5 MG T.I.D. PO
     Route: 048
     Dates: start: 20050105, end: 20081210

REACTIONS (3)
  - ARTHRALGIA [None]
  - MEMORY IMPAIRMENT [None]
  - MYALGIA [None]
